FAERS Safety Report 6164018-3 (Version None)
Quarter: 2009Q2

REPORT INFORMATION
  Report Type: 
  Country: None (occurrence: None)
  Receive Date: 20090422
  Receipt Date: 20090414
  Transmission Date: 20091009
  Serious: Yes (Hospitalization)
  Sender: FDA-Public Use
  Company Number: US-SANOFI-SYNTHELABO-F01200900362

PATIENT
  Sex: Male

DRUGS (4)
  1. LEUCOVORIN CALCIUM [Suspect]
     Indication: RECTAL CANCER
     Dosage: 2X PER CYCLE
  2. FLUOROURACIL [Suspect]
     Indication: RECTAL CANCER
     Dosage: 1X PER 28 DAYS
     Route: 042
  3. BEVACIZUMAB [Suspect]
     Indication: RECTAL CANCER
     Dosage: 2X PER 1 CYCLE
  4. OXALIPLATIN [Suspect]
     Indication: RECTAL CANCER
     Dosage: 2X  PER 1 CYCLE

REACTIONS (1)
  - FISTULA [None]
